FAERS Safety Report 7561661-1 (Version None)
Quarter: 2011Q2

REPORT INFORMATION
  Report Type: 
  Country: None (occurrence: None)
  Receive Date: 20110621
  Receipt Date: 20110617
  Transmission Date: 20111010
  Serious: Yes (Death, Hospitalization)
  Sender: FDA-Public Use
  Company Number: ZA-ABBOTT-11P-008-0723254-00

PATIENT
  Sex: Male

DRUGS (3)
  1. SCAPEX [Concomitant]
     Indication: GASTROENTERITIS
  2. TRUVADA [Concomitant]
     Indication: PRODUCT USED FOR UNKNOWN INDICATION
     Dates: start: 20110310
  3. LOPINAVIR/RITONAVIR [Suspect]
     Indication: HIV INFECTION
     Route: 048
     Dates: start: 20110310

REACTIONS (7)
  - VOMITING [None]
  - RENAL FAILURE [None]
  - PULMONARY TUBERCULOSIS [None]
  - HYPERKALAEMIA [None]
  - DIARRHOEA [None]
  - JAUNDICE [None]
  - LOBAR PNEUMONIA [None]
